FAERS Safety Report 8068825-1 (Version None)
Quarter: 2012Q1

REPORT INFORMATION
  Report Type: 
  Country: None (occurrence: None)
  Receive Date: 20120125
  Receipt Date: 20120123
  Transmission Date: 20120608
  Serious: Yes (Life-Threatening, Hospitalization)
  Sender: FDA-Public Use
  Company Number: US-BRISTOL-MYERS SQUIBB COMPANY-16189763

PATIENT
  Age: 67 Year
  Sex: Male

DRUGS (17)
  1. PEMETREXED DISODIUM [Suspect]
     Indication: NON-SMALL CELL LUNG CANCER
     Dosage: LAST DOSE:07SEP2011
     Route: 042
     Dates: start: 20110726
  2. MILK OF MAGNESIA TAB [Concomitant]
  3. CARBOPLATIN [Suspect]
     Indication: NON-SMALL CELL LUNG CANCER
     Dosage: LAST DOSE:07SEP2011
     Route: 042
     Dates: start: 20110726
  4. AMBIEN [Concomitant]
  5. AVODART [Concomitant]
     Dosage: ALSO ON 02OCT2011
     Dates: start: 20091002
  6. VITAMIN B-12 [Concomitant]
     Dates: start: 20110919
  7. ALBUTEROL [Concomitant]
  8. ONDANSETRON [Concomitant]
     Dates: start: 20110626
  9. FLOMAX [Concomitant]
     Dosage: ALSO ON 02OCT2011
     Dates: start: 20091002
  10. DEXAMETHASONE [Concomitant]
     Dates: start: 20110725
  11. CODEINE PHOSPHATE [Concomitant]
     Dates: start: 20110622
  12. BEVACIZUMAB [Suspect]
     Indication: NON-SMALL CELL LUNG CANCER
     Dosage: LAST DOSE:07SEP2011
     Route: 042
     Dates: start: 20110726, end: 20110930
  13. ACETYLSALICYLIC ACID SRT [Concomitant]
     Dates: start: 20091002
  14. GLUCOSAMINE [Concomitant]
     Dates: start: 20091002
  15. PROCHLORPERAZINE [Concomitant]
     Dates: start: 20110726
  16. FOLIC ACID [Concomitant]
     Dates: start: 20110919
  17. NORCO [Concomitant]

REACTIONS (4)
  - PLEURAL EFFUSION [None]
  - PULMONARY EMBOLISM [None]
  - DYSPNOEA [None]
  - DEEP VEIN THROMBOSIS [None]
